FAERS Safety Report 8434147-X (Version None)
Quarter: 2012Q2

REPORT INFORMATION
  Report Type: 
  Country: None (occurrence: None)
  Receive Date: 20120613
  Receipt Date: 20120605
  Transmission Date: 20120825
  Serious: Yes (Hospitalization, Other)
  Sender: FDA-Public Use
  Company Number: US-ACTELION-A-US2010-40818

PATIENT

DRUGS (3)
  1. COUMADIN [Concomitant]
  2. TRACLEER [Suspect]
     Indication: PULMONARY ARTERIAL HYPERTENSION
     Dosage: UNK
     Route: 048
     Dates: start: 20091208
  3. REVATIO [Concomitant]

REACTIONS (12)
  - HAEMORRHAGE [None]
  - ARTERIAL OCCLUSIVE DISEASE [None]
  - ANAEMIA [None]
  - HAEMOGLOBIN DECREASED [None]
  - ARRHYTHMIA [None]
  - ASTHENIA [None]
  - SWELLING [None]
  - EXOSTOSIS [None]
  - DYSPNOEA [None]
  - STENT PLACEMENT [None]
  - GAIT DISTURBANCE [None]
  - RED BLOOD CELL COUNT DECREASED [None]
